FAERS Safety Report 6823964-5 (Version None)
Quarter: 2010Q3

REPORT INFORMATION
  Report Type: 
  Country: None (occurrence: None)
  Receive Date: 20100708
  Receipt Date: 20060927
  Transmission Date: 20110219
  Serious: Yes (Other)
  Sender: FDA-Public Use
  Company Number: US-PFIZER INC-2006118582

PATIENT
  Age: 37 Year

DRUGS (1)
  1. CHANTIX [Suspect]
     Dates: start: 20060810, end: 20060901

REACTIONS (2)
  - NEPHROLITHIASIS [None]
  - POLYURIA [None]
